FAERS Safety Report 23226790 (Version 1)
Quarter: 2023Q4

REPORT INFORMATION
  Report Type: Spontaneous
  Country: US (occurrence: US)
  Receive Date: 20231124
  Receipt Date: 20231124
  Transmission Date: 20240109
  Serious: Yes (Other)
  Sender: FDA-Public Use
  Company Number: US-SUN PHARMACEUTICAL INDUSTRIES LTD-2023R1-419889

PATIENT
  Age: 73 Year
  Sex: Male

DRUGS (1)
  1. ODOMZO [Suspect]
     Active Substance: SONIDEGIB
     Indication: Basal cell carcinoma
     Dosage: UNK UNK, QD (IN THE MORNING)
     Route: 048
     Dates: start: 20231024, end: 20231115

REACTIONS (5)
  - Erythema [Unknown]
  - Skin sensitisation [Unknown]
  - Swelling face [Unknown]
  - Eye infection [Unknown]
  - Therapy cessation [Unknown]

NARRATIVE: CASE EVENT DATE: 20231112
